FAERS Safety Report 17452613 (Version 2)
Quarter: 2020Q1

REPORT INFORMATION
  Report Type: Spontaneous
  Country: US (occurrence: US)
  Receive Date: 20200224
  Receipt Date: 20200320
  Transmission Date: 20200409
  Serious: No
  Sender: FDA-Public Use
  Company Number: US-ASTRAZENECA-2020SE25248

PATIENT
  Sex: Female
  Weight: 67.8 kg

DRUGS (3)
  1. BYDUREON [Suspect]
     Active Substance: EXENATIDE
     Route: 065
  2. REPATHA [Concomitant]
     Active Substance: EVOLOCUMAB
  3. BYDUREON BCISE [Suspect]
     Active Substance: EXENATIDE
     Indication: GLYCOSYLATED HAEMOGLOBIN
     Route: 058
     Dates: start: 2018

REACTIONS (8)
  - Incorrect dose administered by device [Unknown]
  - Blood urine present [Unknown]
  - Injection site mass [Unknown]
  - Device dispensing error [Unknown]
  - Hypersensitivity [Unknown]
  - Wrong technique in device usage process [Unknown]
  - Device leakage [Unknown]
  - Wrong device used [Unknown]
